FAERS Safety Report 15917077 (Version 1)
Quarter: 2019Q1

REPORT INFORMATION
  Report Type: Spontaneous
  Country: DE (occurrence: DE)
  Receive Date: 20190205
  Receipt Date: 20190205
  Transmission Date: 20190417
  Serious: Yes (Hospitalization)
  Sender: FDA-Public Use
  Company Number: DE-ACCORD-105511

PATIENT
  Age: 47 Year
  Sex: Female

DRUGS (5)
  1. PIPAMPERONE [Suspect]
     Active Substance: PIPAMPERONE
     Indication: PRODUCT USED FOR UNKNOWN INDICATION
     Dosage: 40 MG, 0-0-4-0?MEDICATION ERRORS
  2. PANTOPRAZOLE [Concomitant]
     Active Substance: PANTOPRAZOLE
     Dosage: 40 MG, 1-0-0-0
  3. QUETIAPINE. [Suspect]
     Active Substance: QUETIAPINE
     Indication: PRODUCT USED FOR UNKNOWN INDICATION
     Dosage: 100 MG, 0-0-2-0
  4. METOPROLOL. [Concomitant]
     Active Substance: METOPROLOL
     Dosage: 23.75 MG, 1-0-0-0
  5. LEVOTHYROXINE/LEVOTHYROXINE SODIUM [Concomitant]
     Dosage: 175 MICROGRAM, 1-0-0-0

REACTIONS (4)
  - Product prescribing error [Unknown]
  - Seizure [Unknown]
  - Brain oedema [Unknown]
  - Hyponatraemia [Unknown]
